FAERS Safety Report 13737388 (Version 1)
Quarter: 2017Q3

REPORT INFORMATION
  Report Type: Report from Study
  Country: US (occurrence: US)
  Receive Date: 20170710
  Receipt Date: 20170710
  Transmission Date: 20171127
  Serious: Yes (Other)
  Sender: FDA-Public Use
  Company Number: US-BAYER-2016-204315

PATIENT
  Age: 57 Year
  Sex: Male

DRUGS (15)
  1. NORTRIPTYLINE [Concomitant]
     Active Substance: NORTRIPTYLINE
  2. NORTRIPTYLIN [Concomitant]
     Active Substance: NORTRIPTYLINE
  3. METOPROLOL. [Concomitant]
     Active Substance: METOPROLOL
  4. METFORMIN [Concomitant]
     Active Substance: METFORMIN HYDROCHLORIDE
  5. LISINOPRIL. [Concomitant]
     Active Substance: LISINOPRIL
  6. PROAIR HFA [Concomitant]
     Active Substance: ALBUTEROL SULFATE
  7. NEXAVAR [Suspect]
     Active Substance: SORAFENIB
     Indication: THYROID CANCER
     Dosage: 400 MG, BID
     Route: 048
     Dates: start: 20160921, end: 20160929
  8. NEXAVAR [Suspect]
     Active Substance: SORAFENIB
     Indication: THYROID CANCER
     Dosage: 600 MG DAILY DOSE (200 MG IN MORNING AND 400 MG IN NIGHT)
     Route: 048
     Dates: start: 20160930
  9. LEVOTHYROXIN [Concomitant]
     Active Substance: LEVOTHYROXINE
  10. APIXABAN [Concomitant]
     Active Substance: APIXABAN
  11. KEPPRA [Concomitant]
     Active Substance: LEVETIRACETAM
  12. MONTELUKAST [Concomitant]
     Active Substance: MONTELUKAST SODIUM
  13. PRAVASTATIN. [Concomitant]
     Active Substance: PRAVASTATIN
  14. TRAMADOL HYDROCHLORIDE. [Concomitant]
     Active Substance: TRAMADOL HYDROCHLORIDE
     Dosage: 50 MG, UNK
  15. ALBUTEROL. [Concomitant]
     Active Substance: ALBUTEROL

REACTIONS (16)
  - Neuropathy peripheral [Not Recovered/Not Resolved]
  - Dysgeusia [Not Recovered/Not Resolved]
  - Diarrhoea [Not Recovered/Not Resolved]
  - Dry skin [Not Recovered/Not Resolved]
  - Fatigue [Not Recovered/Not Resolved]
  - Depressed mood [Not Recovered/Not Resolved]
  - Memory impairment [Not Recovered/Not Resolved]
  - Constipation [Not Recovered/Not Resolved]
  - Glossodynia [Recovering/Resolving]
  - Oral pain [Not Recovered/Not Resolved]
  - Thyroid cancer [Not Recovered/Not Resolved]
  - Appetite disorder [None]
  - Skin disorder [Recovered/Resolved]
  - Peripheral swelling [None]
  - Decreased appetite [Not Recovered/Not Resolved]
  - Pain in extremity [Not Recovered/Not Resolved]

NARRATIVE: CASE EVENT DATE: 2016
